FAERS Safety Report 8651518 (Version 2)
Quarter: 2013Q1

REPORT INFORMATION
  Report Type: Spontaneous
  Country: NL (occurrence: None)
  Receive Date: 20120621
  Receipt Date: 20130108
  Transmission Date: 20140127
  Serious: Yes (Life-Threatening, Hospitalization)
  Sender: FDA-Public Use
  Company Number: 2012-NL-0002

PATIENT
  Age: 56 Year
  Sex: Male

DRUGS (10)
  1. FENTANYL [Suspect]
     Indication: BACK PAIN
     Dosage: 200 MCG X 1 PER AS REQUIRED
     Dates: start: 20120507, end: 20120509
  2. ASASANTIN RETART (ACETYLSALICYLIC ACID W/DIPYRIDAMOLE) [Concomitant]
  3. LIPITOR [Concomitant]
  4. CORTISONACETAAT PCH (CORTISONE ACETATE) [Concomitant]
  5. FLUDROCORTISON ACETAAT PCH (FLUDROCORTISONE ACETATE) [Concomitant]
  6. METOPROLOL TARTRAAT (METOPROLOL TARTRATE) [Concomitant]
  7. NEXAVAR [Concomitant]
  8. CODIOVAN (HYDROCHLOROTHIAZIDE W/VALSARTAN) [Concomitant]
  9. FENTANYL NYCOMED (FENTANYL) [Concomitant]
  10. OXYCONTIN [Concomitant]

REACTIONS (5)
  - Local swelling [None]
  - Infection [None]
  - Blood creatine phosphokinase increased [None]
  - C-reactive protein increased [None]
  - Dysphagia [None]
